FAERS Safety Report 5726236-5 (Version None)
Quarter: 2008Q2

REPORT INFORMATION
  Report Type: 
  Country: None (occurrence: None)
  Receive Date: 20080502
  Receipt Date: 20080502
  Transmission Date: 20081010
  Serious: Yes (Hospitalization)
  Sender: FDA-Public Use
  Company Number: None

PATIENT
  Age: 62 Year
  Sex: Female
  Weight: 97 kg

DRUGS (1)
  1. HEPARIN [Suspect]
     Indication: ANTICOAGULANT THERAPY
     Dosage: TITRATED WEIGHT BASED IV DRIP
     Route: 041
     Dates: start: 20080329, end: 20080330

REACTIONS (2)
  - EPISTAXIS [None]
  - PULMONARY HAEMORRHAGE [None]
